FAERS Safety Report 4363939-1 (Version None)
Quarter: 2004Q2

REPORT INFORMATION
  Report Type: 
  Country: None (occurrence: None)
  Receive Date: 20040520
  Receipt Date: 20031119
  Transmission Date: 20050107
  Serious: No
  Sender: FDA-Public Use
  Company Number: 2003-06325

PATIENT
  Age: 43 Year
  Sex: Male

DRUGS (4)
  1. HEPSERA [Suspect]
     Indication: HEPATITIS B
     Dosage: 10 MG, ONCE A DAY, ORAL
     Route: 048
     Dates: start: 20020101
  2. ALBUTEROL [Concomitant]
  3. SEREVENT [Concomitant]
  4. ACCOLATE [Concomitant]

REACTIONS (1)
  - THERAPY NON-RESPONDER [None]
